FAERS Safety Report 7653190-1 (Version None)
Quarter: 2011Q3

REPORT INFORMATION
  Report Type: 
  Country: None (occurrence: None)
  Receive Date: 20110803
  Receipt Date: 20110801
  Transmission Date: 20111222
  Serious: Yes (Death)
  Sender: FDA-Public Use
  Company Number: US-SANOFI-AVENTIS-2010SA018343

PATIENT
  Age: 37 Year
  Sex: Male
  Weight: 82 kg

DRUGS (11)
  1. ZOLPIDEM [Suspect]
     Route: 065
     Dates: start: 20071201, end: 20080320
  2. ETHANOL [Suspect]
     Route: 065
     Dates: start: 20080301
  3. ENALAPRIL MALEATE [Concomitant]
  4. AMBIEN [Suspect]
     Route: 048
     Dates: end: 20080320
  5. CIALIS [Concomitant]
  6. AMBIEN [Suspect]
     Route: 048
  7. ZOLPIDEM [Suspect]
     Route: 065
     Dates: start: 20070501
  8. WELLBUTRIN SR [Concomitant]
     Indication: DEPRESSION
  9. HYDROCHLOROTHIAZIDE [Concomitant]
  10. ZOCOR [Concomitant]
  11. WELLBUTRIN SR [Concomitant]
     Indication: ANXIETY

REACTIONS (4)
  - SOMNAMBULISM [None]
  - COMPLETED SUICIDE [None]
  - EATING DISORDER [None]
  - ABNORMAL BEHAVIOUR [None]
